FAERS Safety Report 8858812 (Version 1)
Quarter: 2012Q4

REPORT INFORMATION
  Report Type: Spontaneous
  Country: US (occurrence: None)
  Receive Date: 20121022
  Receipt Date: 20121022
  Transmission Date: 20130627
  Serious: Yes (Other)
  Sender: FDA-Public Use
  Company Number: None

PATIENT
  Age: 63 Year
  Sex: Female
  Weight: 81.65 kg

DRUGS (1)
  1. VIVELLE DOT [Suspect]
     Indication: HORMONE THERAPY
     Dosage: Apply one patch
     Route: 062
     Dates: start: 20121015, end: 20121015

REACTIONS (3)
  - Application site burn [None]
  - Alopecia [None]
  - Product quality issue [None]
